FAERS Safety Report 6884733-3 (Version None)
Quarter: 2010Q3

REPORT INFORMATION
  Report Type: 
  Country: None (occurrence: None)
  Receive Date: 20100729
  Receipt Date: 20070813
  Transmission Date: 20110219
  Serious: No
  Sender: FDA-Public Use
  Company Number: US-PFIZER INC-2007067682

PATIENT
  Sex: Female
  Weight: 86.3 kg

DRUGS (2)
  1. CELEBREX [Suspect]
     Indication: NEUROPATHY PERIPHERAL
     Dates: start: 20070801
  2. VICODIN [Concomitant]

REACTIONS (6)
  - FEELING ABNORMAL [None]
  - HUNGER [None]
  - ILL-DEFINED DISORDER [None]
  - MEDICATION ERROR [None]
  - NASAL DISCOMFORT [None]
  - WEIGHT INCREASED [None]
